FAERS Safety Report 22537868 (Version 1)
Quarter: 2023Q2

REPORT INFORMATION
  Report Type: Spontaneous
  Country: JP (occurrence: JP)
  Receive Date: 20230608
  Receipt Date: 20230608
  Transmission Date: 20230722
  Serious: Yes (Other)
  Sender: FDA-Public Use
  Company Number: JP-MSD-2306JPN000589J

PATIENT

DRUGS (5)
  1. KEYTRUDA [Suspect]
     Active Substance: PEMBROLIZUMAB
     Indication: Non-small cell lung cancer
     Dosage: UNK
     Route: 041
  2. PEMETREXED DISODIUM [Suspect]
     Active Substance: PEMETREXED DISODIUM
     Indication: Non-small cell lung cancer
     Dosage: UNK
     Route: 065
  3. CARBOPLATIN [Suspect]
     Active Substance: CARBOPLATIN
     Indication: Non-small cell lung cancer
     Dosage: UNK
     Route: 065
  4. AFATINIB DIMALEATE [Suspect]
     Active Substance: AFATINIB DIMALEATE
     Indication: Non-small cell lung cancer
     Dosage: UNK
     Route: 065
  5. AFATINIB DIMALEATE [Suspect]
     Active Substance: AFATINIB DIMALEATE
     Dosage: UNK
     Route: 065

REACTIONS (1)
  - Mucosal inflammation [Unknown]
